FAERS Safety Report 11310248 (Version 1)
Quarter: 2015Q3

REPORT INFORMATION
  Report Type: Spontaneous
  Country: JP (occurrence: JP)
  Receive Date: 20150724
  Receipt Date: 20150724
  Transmission Date: 20151125
  Serious: Yes (Other)
  Sender: FDA-Public Use
  Company Number: JP-MALLINCKRODT-T201503562

PATIENT
  Age: 49 Year
  Sex: Male
  Weight: 57 kg

DRUGS (10)
  1. METHADONE [Suspect]
     Active Substance: METHADONE HYDROCHLORIDE
     Dosage: 5 MG (15 MG DAILY DOSE)
     Route: 048
     Dates: start: 20140319
  2. TRAMCET [Concomitant]
     Active Substance: ACETAMINOPHEN\TRAMADOL
     Dosage: 8 DF
     Route: 048
     Dates: end: 20140331
  3. METHADONE [Suspect]
     Active Substance: METHADONE HYDROCHLORIDE
     Indication: CANCER PAIN
     Dosage: 5 MG (10 MG DAILY DOSE)
     Route: 048
     Dates: start: 20140313, end: 20140318
  4. OXINORM [Concomitant]
     Active Substance: OXYCODONE HYDROCHLORIDE
     Dosage: 5 MG, PRN
     Route: 048
  5. FERROUS SULFATE [Concomitant]
     Active Substance: FERROUS SULFATE\FERROUS SULFATE, DRIED
     Dosage: 210 MG
     Route: 048
  6. FENTOS [Concomitant]
     Active Substance: FENTANYL
     Dosage: 2 MG
     Route: 062
     Dates: end: 20140314
  7. MUCODYNE [Concomitant]
     Active Substance: CARBOCYSTEINE
     Dosage: 1500 MG
     Route: 048
  8. IRBETAN [Concomitant]
     Active Substance: IRBESARTAN
     Dosage: 100 MG
     Route: 048
  9. TAKEPRON [Concomitant]
     Active Substance: LANSOPRAZOLE
     Dosage: 15 MG
     Route: 048
  10. FENTOS [Concomitant]
     Active Substance: FENTANYL
     Dosage: 1 MG
     Route: 062
     Dates: start: 20140314, end: 20140317

REACTIONS (5)
  - Nausea [Unknown]
  - Delirium [Unknown]
  - Vomiting [Unknown]
  - Constipation [Unknown]
  - Hypercalcaemia [Unknown]
